FAERS Safety Report 4895174-2 (Version None)
Quarter: 2006Q1

REPORT INFORMATION
  Report Type: 
  Country: None (occurrence: None)
  Receive Date: 20060124
  Receipt Date: 20060112
  Transmission Date: 20060701
  Serious: Yes (Hospitalization)
  Sender: FDA-Public Use
  Company Number: 2006007182

PATIENT
  Age: 72 Year
  Sex: Male
  Weight: 70 kg

DRUGS (5)
  1. AMLODIPINE [Suspect]
     Indication: HYPERTENSION
     Dosage: 5 MG (5 MG, 1 IN 1 D), ORAL
     Route: 048
     Dates: start: 20050503, end: 20051125
  2. METFORMIN HCL [Concomitant]
  3. GLYBURIDE [Concomitant]
  4. ASPIRIN [Concomitant]
  5. ACARBOSE [Concomitant]

REACTIONS (8)
  - DERMATITIS EXFOLIATIVE [None]
  - EPIDERMAL NECROSIS [None]
  - GANGLION [None]
  - GENERAL PHYSICAL HEALTH DETERIORATION [None]
  - LYMPHADENOPATHY [None]
  - PARAPSORIASIS [None]
  - PSEUDO LYMPHOMA [None]
  - WEIGHT DECREASED [None]
